FAERS Safety Report 9657637 (Version 1)
Quarter: 2013Q4

REPORT INFORMATION
  Report Type: Report from Study
  Country: ES (occurrence: ES)
  Receive Date: 20131030
  Receipt Date: 20131030
  Transmission Date: 20140711
  Serious: Yes (Other)
  Sender: FDA-Public Use
  Company Number: ES-VERTEX PHARMACEUTICALS INC-2013-010737

PATIENT
  Sex: 0

DRUGS (3)
  1. TELAPREVIR [Suspect]
     Indication: HEPATITIS C
  2. RIBAVIRIN [Suspect]
     Indication: HEPATITIS C
  3. PEG INTERFERON [Suspect]
     Indication: HEPATITIS C

REACTIONS (2)
  - Hepatic function abnormal [Unknown]
  - Anaemia [Unknown]
